FAERS Safety Report 12261674 (Version 2)
Quarter: 2016Q2

REPORT INFORMATION
  Report Type: Spontaneous
  Country: US (occurrence: US)
  Receive Date: 20160413
  Receipt Date: 20160414
  Transmission Date: 20160815
  Serious: No
  Sender: FDA-Public Use
  Company Number: US-BAYER-2016-069418

PATIENT
  Age: 78 Year
  Sex: Female
  Weight: 68.27 kg

DRUGS (3)
  1. ALEVE PM [Suspect]
     Active Substance: DIPHENHYDRAMINE HYDROCHLORIDE\NAPROXEN SODIUM
     Indication: BACK PAIN
     Dosage: UNK
     Route: 048
  2. ALEVE [Suspect]
     Active Substance: NAPROXEN SODIUM
     Indication: PAIN
     Dosage: UNK UNK, PRN
     Route: 048
  3. ALEVE PM [Suspect]
     Active Substance: DIPHENHYDRAMINE HYDROCHLORIDE\NAPROXEN SODIUM
     Indication: BACK PAIN
     Dosage: 2 DF, ONCE
     Route: 048
     Dates: start: 20160402, end: 20160402

REACTIONS (3)
  - Drug ineffective [None]
  - Insomnia [Recovered/Resolved]
  - Drug effect incomplete [None]

NARRATIVE: CASE EVENT DATE: 20160402
